FAERS Safety Report 14472922 (Version 2)
Quarter: 2018Q1

REPORT INFORMATION
  Report Type: Spontaneous
  Country: JP (occurrence: JP)
  Receive Date: 20180201
  Receipt Date: 20180208
  Transmission Date: 20180509
  Serious: Yes (Other)
  Sender: FDA-Public Use
  Company Number: JP-009507513-1801JPN002822J

PATIENT
  Age: 16 Year
  Sex: Male
  Weight: 67 kg

DRUGS (7)
  1. SINGULAIR [Suspect]
     Active Substance: MONTELUKAST SODIUM
     Indication: ASTHMA
     Dosage: 10 MG, QD
     Route: 048
     Dates: start: 20131116, end: 20140821
  2. CLARITIN [Concomitant]
     Active Substance: LORATADINE
     Indication: FOOD ALLERGY
     Dosage: 10 MG, QD
     Route: 048
     Dates: start: 20130302
  3. SINGULAIR [Suspect]
     Active Substance: MONTELUKAST SODIUM
     Dosage: 10 MG, QD
     Route: 048
     Dates: start: 20170202, end: 20171211
  4. FLUTIDE [Concomitant]
     Active Substance: FLUTICASONE PROPIONATE
     Indication: ASTHMA
     Dosage: 100 MICROGRAM, BID
     Route: 055
     Dates: start: 20121017
  5. RISPERDAL [Concomitant]
     Active Substance: RISPERIDONE
     Indication: ANXIETY
     Dosage: UNK
     Route: 048
  6. INTAL [Concomitant]
     Active Substance: CROMOLYN SODIUM
     Indication: FOOD ALLERGY
     Dosage: 1 DF, TID
     Route: 048
     Dates: start: 20020717, end: 20160114
  7. MYSLEE [Concomitant]
     Active Substance: ZOLPIDEM TARTRATE
     Indication: INSOMNIA
     Dosage: UNK
     Route: 048

REACTIONS (7)
  - Mood altered [Recovered/Resolved]
  - Chronic fatigue syndrome [Unknown]
  - Hyperventilation [Recovered/Resolved]
  - School refusal [Recovered/Resolved]
  - School refusal [Recovered/Resolved]
  - Somnambulism [Recovered/Resolved]
  - Depression [Unknown]

NARRATIVE: CASE EVENT DATE: 2017
